FAERS Safety Report 8445614-7 (Version None)
Quarter: 2012Q2

REPORT INFORMATION
  Report Type: 
  Country: None (occurrence: None)
  Receive Date: 20120618
  Receipt Date: 20120608
  Transmission Date: 20120825
  Serious: Yes (Other)
  Sender: FDA-Public Use
  Company Number: US-ASTRAZENECA-2012SE38696

PATIENT
  Age: 78 Year
  Sex: Female
  Weight: 76.2 kg

DRUGS (13)
  1. NEXIUM [Suspect]
     Indication: HIATUS HERNIA
     Route: 048
  2. NITROFURANTOIN MONOHYDRATE/MACROCRYSTALS [Concomitant]
     Indication: CYSTITIS
  3. VITAMIN B-12 [Concomitant]
  4. STOOL SOFTENER [Concomitant]
  5. NEXIUM [Suspect]
     Indication: ABDOMINAL DISTENSION
     Route: 048
  6. VIIBRYD [Concomitant]
  7. MULTI-VITAMINS [Concomitant]
  8. CLOZAPINE [Concomitant]
     Indication: ANXIETY
  9. MAGNESIUM SUPPLEMENTS OXI [Concomitant]
     Dosage: 44 TABLETS OF 400 MG TWO TIMES A DAY
  10. NEXIUM [Suspect]
     Indication: FLATULENCE
     Route: 048
  11. METFORMIN HCL [Concomitant]
  12. NASONEX [Concomitant]
     Indication: HYPERSENSITIVITY
  13. CRANBERRY [Concomitant]

REACTIONS (6)
  - SEROTONIN SYNDROME [None]
  - BLOOD MAGNESIUM DECREASED [None]
  - NON-HODGKIN'S LYMPHOMA [None]
  - LEUKAEMIA [None]
  - DEPRESSION [None]
  - OFF LABEL USE [None]
